FAERS Safety Report 8617976 (Version 2)
Quarter: 2014Q1

REPORT INFORMATION
  Report Type: Spontaneous
  Country: US (occurrence: None)
  Receive Date: 20120323
  Receipt Date: 20130305
  Transmission Date: 20141002
  Serious: Yes (Other)
  Sender: FDA-Public Use
  Company Number: 163-21880-11114164

PATIENT
  Age: 72 Year
  Sex: Male
  Weight: 81.65 kg

DRUGS (9)
  1. REVLIMID [Suspect]
     Indication: PLASMA CELL MYELOMA
     Dosage: 15MG, 1 IN 1 D, PO : 15 MG, DAILY X 21 DAYS, PO
     Route: 048
     Dates: start: 201112
  2. ASPIRIN (ACETYLSALICYLIC ACID) [Concomitant]
  3. CARVEDILOL (CARVEDILOL) [Concomitant]
  4. DEXAMETHASONE (DEXAMETHASONE) [Concomitant]
  5. HYDROCODONE (HYDROCODONE) [Concomitant]
  6. LORAZEPAM [Concomitant]
  7. NEXIUM (ESOMEPRAZOLE) [Concomitant]
  8. PAROXETINE (PAROXETINE) [Concomitant]
  9. TEMAZEPAM (TEMAZEPAM) [Concomitant]

REACTIONS (3)
  - Cataract [None]
  - Nasopharyngitis [None]
  - Cough [None]
